FAERS Safety Report 15576017 (Version 3)
Quarter: 2020Q1

REPORT INFORMATION
  Report Type: Spontaneous
  Country: JP (occurrence: JP)
  Receive Date: 20181101
  Receipt Date: 20200325
  Transmission Date: 20200409
  Serious: Yes (Other)
  Sender: FDA-Public Use
  Company Number: PHJP2018JP018611

PATIENT
  Age: 44 Year
  Sex: Male
  Weight: 61.7 kg

DRUGS (8)
  1. COSENTYX [Suspect]
     Active Substance: SECUKINUMAB
     Indication: PSORIATIC ARTHROPATHY
     Dosage: 300 MG, QW
     Route: 058
     Dates: start: 20181004, end: 20181025
  2. POLARAMINE [Concomitant]
     Active Substance: DEXCHLORPHENIRAMINE MALEATE
     Indication: PRURITUS
     Dosage: UNK
     Route: 048
     Dates: start: 20180926
  3. BETAMETHASONE BUTYRATE PROPIONATE [Concomitant]
     Active Substance: BETAMETHASONE BUTYRATE PROPIONATE
     Indication: PSORIASIS
     Dosage: UNK
     Route: 065
  4. OXAROL [Concomitant]
     Active Substance: MAXACALCITOL
     Indication: PSORIASIS
     Dosage: UNK
     Route: 061
     Dates: start: 20180816
  5. FEXOFENADINE HYDROCHLORIDE. [Concomitant]
     Active Substance: FEXOFENADINE HYDROCHLORIDE
     Indication: PRURITUS
     Dosage: UNK
     Route: 048
     Dates: start: 20180914, end: 20181009
  6. HYDROCORT BUTYRATE [Concomitant]
     Active Substance: HYDROCORTISONE BUTYRATE
     Indication: PSORIASIS
     Dosage: UNK
     Route: 065
  7. OLOPATADINE HYDROCHLORIDE. [Concomitant]
     Active Substance: OLOPATADINE HYDROCHLORIDE
     Indication: PRURITUS
     Dosage: UNK
     Route: 048
     Dates: start: 20181010, end: 20181028
  8. DIFLUPREDNATE [Concomitant]
     Active Substance: DIFLUPREDNATE
     Indication: PSORIASIS
     Dosage: UNK
     Route: 061
     Dates: start: 20180816

REACTIONS (6)
  - Skin exfoliation [Unknown]
  - Dermatitis exfoliative generalised [Recovered/Resolved]
  - Hypersensitivity [Unknown]
  - Erythema [Unknown]
  - Neutrophil count decreased [Recovered/Resolved]
  - Eosinophilia [Recovered/Resolved]

NARRATIVE: CASE EVENT DATE: 201810
